FAERS Safety Report 9394679 (Version 5)
Quarter: 2014Q2

REPORT INFORMATION
  Report Type: Spontaneous
  Country: US (occurrence: US)
  Receive Date: 20130711
  Receipt Date: 20140506
  Transmission Date: 20141212
  Serious: No
  Sender: FDA-Public Use
  Company Number: US-009507513-1307USA004911

PATIENT
  Age: 67 Year
  Sex: Female
  Weight: 48.53 kg

DRUGS (4)
  1. PEG-INTRON [Suspect]
     Indication: HEPATITIS C
     Dosage: REDIPEN, 3.5ML DECREASED TO 0.3CC, ONCE A WEEK
     Route: 058
     Dates: start: 20130615
  2. REBETOL [Suspect]
     Indication: HEPATITIS C
     Dosage: UNKNOWN DOSE REDUCED TO 200 MG, DAILY
     Route: 048
     Dates: start: 20130615
  3. VICTRELIS [Suspect]
     Indication: HEPATITIS C
     Dosage: 2400MG, TID (THREE TIMES A DAY)
     Route: 048
     Dates: start: 20130713
  4. PROCRIT [Concomitant]
     Dosage: UNK

REACTIONS (23)
  - Increased viscosity of nasal secretion [Unknown]
  - Retching [Unknown]
  - Rhinorrhoea [Unknown]
  - Decreased appetite [Recovering/Resolving]
  - Weight decreased [Recovering/Resolving]
  - Dysgeusia [Unknown]
  - Anaemia [Unknown]
  - Vomiting [Unknown]
  - Nausea [Unknown]
  - Weight decreased [Unknown]
  - Cough [Unknown]
  - Fatigue [Unknown]
  - Asthenia [Unknown]
  - Nausea [Unknown]
  - Vomiting [Unknown]
  - Cough [Not Recovered/Not Resolved]
  - Retching [Not Recovered/Not Resolved]
  - Dysgeusia [Not Recovered/Not Resolved]
  - Drug dose omission [Unknown]
  - Product quality issue [Unknown]
  - Nausea [Not Recovered/Not Resolved]
  - Fatigue [Not Recovered/Not Resolved]
  - Influenza like illness [Not Recovered/Not Resolved]
